FAERS Safety Report 19247752 (Version 1)
Quarter: 2021Q2

REPORT INFORMATION
  Report Type: Spontaneous
  Country: US (occurrence: US)
  Receive Date: 20210512
  Receipt Date: 20210512
  Transmission Date: 20210717
  Serious: Yes (Hospitalization)
  Sender: FDA-Public Use
  Company Number: None

PATIENT
  Age: 3 Month
  Sex: Female
  Weight: 3.6 kg

DRUGS (2)
  1. PHYTONADIONE 5 MG TABLET [Suspect]
     Active Substance: PHYTONADIONE
     Dosage: ?          QUANTITY:2 CAPSULE(S);OTHER FREQUENCY:1/8, 1/15, 2/15;?
     Route: 048
     Dates: start: 20210108, end: 20210212
  2. CREON [Suspect]
     Active Substance: PANCRELIPASE AMYLASE\PANCRELIPASE LIPASE\PANCRELIPASE PROTEASE
     Indication: CYSTIC FIBROSIS
     Dosage: ?          OTHER STRENGTH:3,000;QUANTITY:1500 CAPSULE(S);OTHER FREQUENCY:EVERY 2 TO 3 HOURS;?
     Route: 048
     Dates: start: 20210108, end: 20210208

REACTIONS (12)
  - Aspartate aminotransferase increased [None]
  - Diarrhoea [None]
  - Cholelithiasis [None]
  - Irritability [None]
  - Crying [None]
  - Pyrexia [None]
  - Blood phosphorus increased [None]
  - Flatulence [None]
  - Vomiting [None]
  - Decreased appetite [None]
  - Abdominal distension [None]
  - Alanine aminotransferase increased [None]

NARRATIVE: CASE EVENT DATE: 20210318
